FAERS Safety Report 5714557-1 (Version None)
Quarter: 2008Q2

REPORT INFORMATION
  Report Type: 
  Country: None (occurrence: None)
  Receive Date: 20080421
  Receipt Date: 20080414
  Transmission Date: 20081010
  Serious: Yes (Death)
  Sender: FDA-Public Use
  Company Number: 2008-173818-NL

PATIENT
  Sex: Female

DRUGS (9)
  1. MIRTAZAPINE [Suspect]
     Indication: DEPRESSION
     Dosage: 45 MG QOD/45 MG BID
     Route: 048
     Dates: start: 20060627, end: 20070910
  2. MIRTAZAPINE [Suspect]
     Indication: DEPRESSION
     Dosage: 45 MG QOD/45 MG BID
     Route: 048
     Dates: start: 20070911, end: 20071005
  3. OLANZAPINE [Concomitant]
  4. LITHIUM CITRATE [Concomitant]
  5. CLONAZEPAM [Concomitant]
  6. LACIDIPINE [Concomitant]
  7. ACETYLSALICYLIC ACID SRT [Concomitant]
  8. ORPHENADRINE CITRATE [Concomitant]
  9. FELODIPINE [Concomitant]

REACTIONS (7)
  - ACCIDENTAL OVERDOSE [None]
  - CEREBROVASCULAR ACCIDENT [None]
  - CONFUSIONAL STATE [None]
  - GENERAL PHYSICAL CONDITION ABNORMAL [None]
  - PNEUMONIA ASPIRATION [None]
  - TRANSIENT ISCHAEMIC ATTACK [None]
  - TREMOR [None]
